FAERS Safety Report 21608485 (Version 1)
Quarter: 2022Q4

REPORT INFORMATION
  Report Type: Spontaneous
  Country: QA (occurrence: QA)
  Receive Date: 20221117
  Receipt Date: 20221117
  Transmission Date: 20230113
  Serious: Yes (Hospitalization, Other)
  Sender: FDA-Public Use
  Company Number: QA-GLAXOSMITHKLINE-QACH2022GSK044641

PATIENT

DRUGS (1)
  1. IBUPROFEN [Suspect]
     Active Substance: IBUPROFEN
     Indication: Rash
     Dosage: UNK

REACTIONS (12)
  - Necrotising fasciitis [Unknown]
  - Renal impairment [Unknown]
  - Poor quality sleep [Unknown]
  - Dehydration [Unknown]
  - Tachycardia [Unknown]
  - Tachypnoea [Unknown]
  - Pyrexia [Unknown]
  - Blood pressure decreased [Unknown]
  - Blister [Unknown]
  - Leukocytosis [Unknown]
  - Hyperglycaemia [Unknown]
  - Anaemia [Unknown]
